FAERS Safety Report 5181763-7 (Version None)
Quarter: 2006Q4

REPORT INFORMATION
  Report Type: 
  Country: None (occurrence: None)
  Receive Date: 20061220
  Receipt Date: 20060309
  Transmission Date: 20070319
  Serious: No
  Sender: FDA-Public Use
  Company Number: US-GLAXOSMITHKLINE-A0596836A

PATIENT
  Age: 51 Year

DRUGS (3)
  1. COMMIT [Suspect]
  2. NICORETTE [Suspect]
  3. NICODERM CQ [Suspect]

REACTIONS (7)
  - APPLICATION SITE DISCOMFORT [None]
  - APPLICATION SITE IRRITATION [None]
  - DYSPEPSIA [None]
  - INTENTIONAL DRUG MISUSE [None]
  - LIP BLISTER [None]
  - LIP DISCOLOURATION [None]
  - NICOTINE DEPENDENCE [None]
